FAERS Safety Report 25977043 (Version 1)
Quarter: 2025Q4

REPORT INFORMATION
  Report Type: Report from Study
  Country: US (occurrence: US)
  Receive Date: 20251030
  Receipt Date: 20251030
  Transmission Date: 20260118
  Serious: Yes (Other)
  Sender: ACADIA PHARMACEUTICALS
  Company Number: US-ACADIA PHARMACEUTICALS INC.-ACA-2025-PIM-011488

PATIENT
  Age: 72 Year
  Sex: Male

DRUGS (9)
  1. NUPLAZID [Suspect]
     Active Substance: PIMAVANSERIN TARTRATE
     Indication: Parkinson^s disease psychosis
     Dosage: 34 MILLIGRAM, QD
     Route: 048
     Dates: start: 20251008, end: 20251011
  2. BRIMONIDINE [Concomitant]
     Active Substance: BRIMONIDINE TARTRATE
  3. TIMOLOL MALEATE [Concomitant]
     Active Substance: TIMOLOL MALEATE
  4. RIVASTIGMINE [Concomitant]
     Active Substance: RIVASTIGMINE
     Dosage: 9.5
  5. CLONAZEPAM [Concomitant]
     Active Substance: CLONAZEPAM
  6. MEMANTINE [Concomitant]
     Active Substance: MEMANTINE
  7. GABAPENTIN [Concomitant]
     Active Substance: GABAPENTIN
  8. QUETIAPINE [Concomitant]
     Active Substance: QUETIAPINE
  9. ZOLPIDEM [Concomitant]
     Active Substance: ZOLPIDEM TARTRATE

REACTIONS (4)
  - Hallucination [Recovered/Resolved]
  - Dizziness [Recovered/Resolved]
  - Frustration tolerance decreased [Recovered/Resolved]
  - Anger [Recovered/Resolved]

NARRATIVE: CASE EVENT DATE: 20251009
